FAERS Safety Report 7690635-5 (Version None)
Quarter: 2011Q3

REPORT INFORMATION
  Report Type: 
  Country: None (occurrence: None)
  Receive Date: 20110818
  Receipt Date: 20110808
  Transmission Date: 20111222
  Serious: Yes (Other)
  Sender: FDA-Public Use
  Company Number: BR-JNJFOC-20110804178

PATIENT
  Age: 34 Year
  Sex: Female
  Weight: 77.4 kg

DRUGS (5)
  1. ACETAMINOPHEN W/ CODEINE [Suspect]
     Indication: BACK PAIN
     Route: 048
     Dates: start: 20110805, end: 20110806
  2. LEVONORGESTREL AND ETHINYL ESTRADIOL [Concomitant]
     Indication: CONTRACEPTION
     Route: 065
  3. PROPRANOLOL [Concomitant]
     Indication: HYPERTENSION
     Route: 065
  4. TRAMADOL HYDROCHLORIDE [Concomitant]
     Route: 065
  5. DRAMIN [Concomitant]
     Route: 065

REACTIONS (6)
  - HEADACHE [None]
  - NAUSEA [None]
  - BLOOD PRESSURE DECREASED [None]
  - DIZZINESS [None]
  - HYPERHIDROSIS [None]
  - VOMITING [None]
